FAERS Safety Report 14282972 (Version 1)
Quarter: 2017Q4

REPORT INFORMATION
  Report Type: Spontaneous
  Country: US (occurrence: US)
  Receive Date: 20171213
  Receipt Date: 20171213
  Transmission Date: 20180321
  Serious: No
  Sender: FDA-Public Use
  Company Number: US-TEVA-2017-US-832207

PATIENT
  Sex: Female

DRUGS (1)
  1. CEFALEXIN [Suspect]
     Active Substance: CEPHALEXIN
     Indication: LOCALISED INFECTION
     Dosage: DOSE STRENGTH: 500 MG
     Dates: start: 20171122, end: 20171201

REACTIONS (4)
  - Bladder pain [Unknown]
  - Hot flush [Unknown]
  - Inappropriate schedule of drug administration [Unknown]
  - Blood urine present [Unknown]

NARRATIVE: CASE EVENT DATE: 20171201
